FAERS Safety Report 15661204 (Version 3)
Quarter: 2019Q1

REPORT INFORMATION
  Report Type: Spontaneous
  Country: MX (occurrence: MX)
  Receive Date: 20181127
  Receipt Date: 20190108
  Transmission Date: 20190417
  Serious: Yes (Other)
  Sender: FDA-Public Use
  Company Number: MX-PROVELL PHARMACEUTICALS-2059297

PATIENT
  Age: 24 Year
  Sex: Female
  Weight: 50 kg

DRUGS (5)
  1. ASPIRIN PROTECT [Concomitant]
     Active Substance: ASPIRIN
     Route: 048
     Dates: start: 20180308
  2. FOLIVITAL [Concomitant]
     Route: 048
     Dates: start: 20180308
  3. EUTHYROX [Suspect]
     Active Substance: LEVOTHYROXINE SODIUM
     Indication: BLOOD THYROID STIMULATING HORMONE ABNORMAL
     Route: 048
     Dates: start: 20180324, end: 20181016
  4. GESLUTIN [Concomitant]
     Route: 067
     Dates: start: 20180308
  5. CALTRATE WITH VITAMIN D [Concomitant]
     Active Substance: CALCIUM CARBONATE\CHOLECALCIFEROL
     Route: 048
     Dates: start: 20180421

REACTIONS (14)
  - Abortion threatened [Recovered/Resolved]
  - Obstructed labour [Recovered/Resolved]
  - Placental disorder [Recovered/Resolved]
  - Blood cholesterol increased [None]
  - Blood triglycerides increased [None]
  - Low density lipoprotein increased [None]
  - Maternal exposure during pregnancy [Recovered/Resolved]
  - Blood pressure decreased [Recovered/Resolved]
  - Headache [Recovered/Resolved]
  - Hypoacusis [Recovered/Resolved]
  - Gamma-glutamyltransferase decreased [None]
  - Live birth [Recovered/Resolved]
  - Non-high-density lipoprotein cholesterol increased [None]
  - Blood alkaline phosphatase increased [None]

NARRATIVE: CASE EVENT DATE: 2018
